FAERS Safety Report 6008547-1 (Version None)
Quarter: 2008Q4

REPORT INFORMATION
  Report Type: 
  Country: None (occurrence: None)
  Receive Date: 20081217
  Receipt Date: 20081208
  Transmission Date: 20090506
  Serious: Yes (Other)
  Sender: FDA-Public Use
  Company Number: DE-B.I. PHARMACEUTICALS,INC./RIDGEFIELD-2008-DE-07521GD

PATIENT
  Age: 8 Day
  Sex: Male
  Weight: 0.59 kg

DRUGS (2)
  1. ORCIPRENALIN [Suspect]
     Indication: ATRIOVENTRICULAR BLOCK SECOND DEGREE
     Dosage: 3 BOLUS DOSES OF 10 MCG/KG, FOLLOWED BY A CONTINUOUS INFUSION OF 10 MCG/KG/H
  2. ATROPINE [Suspect]
     Indication: ATRIOVENTRICULAR BLOCK SECOND DEGREE
     Dosage: 10 MCG/KG
     Route: 042

REACTIONS (1)
  - DRUG INEFFECTIVE [None]
